FAERS Safety Report 6027321-3 (Version None)
Quarter: 2009Q1

REPORT INFORMATION
  Report Type: 
  Country: None (occurrence: None)
  Receive Date: 20090105
  Receipt Date: 20081229
  Transmission Date: 20090719
  Serious: Yes (Death, Other)
  Sender: FDA-Public Use
  Company Number: B0531734A

PATIENT
  Age: 28 Year
  Sex: Female

DRUGS (6)
  1. PAXIL [Suspect]
     Indication: EATING DISORDER
     Dosage: 40MG PER DAY
     Route: 048
     Dates: start: 20070401, end: 20080730
  2. PAXIL [Suspect]
     Dosage: 40MG PER DAY
     Route: 048
     Dates: start: 20080801
  3. LENDORMIN [Suspect]
     Indication: INSOMNIA
     Dosage: .25MG PER DAY
     Route: 048
     Dates: start: 20080628
  4. RESLIN [Concomitant]
     Dosage: 1U PER DAY
     Route: 048
     Dates: end: 20080730
  5. UNKNOWN DRUG [Concomitant]
     Route: 065
     Dates: end: 20080601
  6. MYSLEE [Concomitant]
     Route: 048
     Dates: start: 20080601

REACTIONS (4)
  - DEATH [None]
  - DRUG EXPOSURE DURING PREGNANCY [None]
  - DRUG EXPOSURE VIA BREAST MILK [None]
  - PREMATURE RUPTURE OF MEMBRANES [None]
